FAERS Safety Report 16497665 (Version 1)
Quarter: 2019Q2

REPORT INFORMATION
  Report Type: Spontaneous
  Country: FR (occurrence: FR)
  Receive Date: 20190628
  Receipt Date: 20190628
  Transmission Date: 20190711
  Serious: Yes (Other)
  Sender: FDA-Public Use
  Company Number: FR-JNJFOC-20190623152

PATIENT
  Age: 15 Year
  Sex: Male

DRUGS (2)
  1. RISPERDAL [Suspect]
     Active Substance: RISPERIDONE
     Route: 065
     Dates: start: 20190607
  2. RISPERDAL [Suspect]
     Active Substance: RISPERIDONE
     Indication: CATATONIA
     Route: 065
     Dates: start: 20190603

REACTIONS (1)
  - Hepatocellular injury [Unknown]
